FAERS Safety Report 10381345 (Version 1)
Quarter: 2014Q3

REPORT INFORMATION
  Report Type: Report from Study
  Country: US (occurrence: US)
  Receive Date: 20140813
  Receipt Date: 20140813
  Transmission Date: 20150326
  Serious: Yes (Death, Hospitalization)
  Sender: FDA-Public Use
  Company Number: US-ASTELLAS-2014US010012

PATIENT
  Age: 67 Year
  Sex: Female

DRUGS (1)
  1. ERLOTINIB [Suspect]
     Active Substance: ERLOTINIB
     Indication: PANCREATIC CARCINOMA
     Route: 048
     Dates: start: 20080611, end: 20090819

REACTIONS (2)
  - Intestinal obstruction [Fatal]
  - Death [Fatal]

NARRATIVE: CASE EVENT DATE: 20090822
